FAERS Safety Report 6373376-6 (Version None)
Quarter: 2009Q3

REPORT INFORMATION
  Report Type: 
  Country: None (occurrence: None)
  Receive Date: 20090924
  Receipt Date: 20090413
  Transmission Date: 20100115
  Serious: No
  Sender: FDA-Public Use
  Company Number: US-ASTRAZENECA-2009UW05908

PATIENT
  Age: 7386 Day
  Sex: Male
  Weight: 72.6 kg

DRUGS (4)
  1. SEROQUEL [Suspect]
     Indication: BIPOLAR DISORDER
     Route: 048
     Dates: start: 20050511, end: 20090219
  2. SEROQUEL [Suspect]
     Route: 048
     Dates: start: 20050511, end: 20090219
  3. SEROQUEL [Suspect]
     Dosage: SEROQUEL XR 100 MG DAILY
     Route: 048
     Dates: start: 20090312, end: 20090319
  4. TRAZODONE HCL [Concomitant]
     Indication: INSOMNIA

REACTIONS (2)
  - SEXUAL DYSFUNCTION [None]
  - SOMNOLENCE [None]
